FAERS Safety Report 4716032-X (Version None)
Quarter: 2005Q3

REPORT INFORMATION
  Report Type: 
  Country: None (occurrence: None)
  Receive Date: 20050718
  Receipt Date: 20050708
  Transmission Date: 20060218
  Serious: Yes (Other)
  Sender: FDA-Public Use
  Company Number: 200516339GDDC

PATIENT
  Age: 34 Year
  Sex: Female

DRUGS (6)
  1. TELFAST [Suspect]
  2. ATENOLOL [Concomitant]
     Indication: BLOOD PRESSURE
  3. CARDIOVASCULAR SYSTEM DRUGS [Concomitant]
     Indication: BLOOD PRESSURE
  4. ANTIINFLAMMATORY/ANTIRHEUMATIC PRODUCTS [Concomitant]
  5. NOVORAPID [Concomitant]
     Indication: DIABETES MELLITUS
  6. LEVEMIR [Concomitant]
     Indication: DIABETES MELLITUS

REACTIONS (1)
  - HYPERGLYCAEMIA [None]
